FAERS Safety Report 18045818 (Version 1)
Quarter: 2020Q3

REPORT INFORMATION
  Report Type: Spontaneous
  Country: CA (occurrence: CA)
  Receive Date: 20200721
  Receipt Date: 20200721
  Transmission Date: 20201103
  Serious: Yes (Other)
  Sender: FDA-Public Use
  Company Number: CA-CELLTRION INC.-2020CA024353

PATIENT

DRUGS (22)
  1. METHOTREXATE SODIUM. [Suspect]
     Active Substance: METHOTREXATE SODIUM
     Route: 065
  2. RITUXIMAB, VORHYALURONIDASE ALFA [Suspect]
     Active Substance: HYALURONIDASE (HUMAN RECOMBINANT)\RITUXIMAB
     Indication: VASCULITIS
     Dosage: UNK
     Route: 058
  3. VITAMIN D3 [Concomitant]
     Active Substance: CHOLECALCIFEROL
     Route: 065
  4. INFLIXIMAB PFIZER (UNKNOWN) [Suspect]
     Active Substance: INFLIXIMAB
     Indication: CROHN^S DISEASE
     Route: 042
  5. SOLU?MEDROL [Suspect]
     Active Substance: METHYLPREDNISOLONE SODIUM SUCCINATE
     Dosage: UNK
     Route: 042
  6. CEFUROXIME. [Concomitant]
     Active Substance: CEFUROXIME
     Indication: BRONCHITIS
     Route: 065
  7. PREDNISONE. [Concomitant]
     Active Substance: PREDNISONE
     Indication: BRONCHITIS
     Dosage: UNK
     Route: 065
  8. SALBUTAMOL [Concomitant]
     Active Substance: ALBUTEROL
     Route: 065
  9. PREGABALIN. [Suspect]
     Active Substance: PREGABALIN
     Route: 048
  10. AZITHROMYCIN ANHYDROUS. [Suspect]
     Active Substance: AZITHROMYCIN ANHYDROUS
     Dosage: UNK
     Route: 048
  11. RITUXIMAB, VORHYALURONIDASE ALFA [Suspect]
     Active Substance: HYALURONIDASE (HUMAN RECOMBINANT)\RITUXIMAB
     Indication: ARTHRALGIA
     Dosage: UNK
  12. CALCIUM [Concomitant]
     Active Substance: CALCIUM
     Route: 048
  13. FLOVENT [Concomitant]
     Active Substance: FLUTICASONE PROPIONATE
     Route: 065
  14. NAPROXEN. [Concomitant]
     Active Substance: NAPROXEN
     Route: 048
  15. INFLIXIMAB PFIZER (UNKNOWN) [Suspect]
     Active Substance: INFLIXIMAB
     Indication: COLITIS
     Dosage: UNK
  16. RITUXIMAB, VORHYALURONIDASE ALFA [Suspect]
     Active Substance: HYALURONIDASE (HUMAN RECOMBINANT)\RITUXIMAB
     Indication: ANTINEUTROPHIL CYTOPLASMIC ANTIBODY
     Dosage: UNK
  17. PANTOPRAZOLE [Concomitant]
     Active Substance: PANTOPRAZOLE
     Route: 048
  18. TYLENOL [Concomitant]
     Active Substance: ACETAMINOPHEN
     Route: 048
  19. CODEINE [Suspect]
     Active Substance: CODEINE
     Dosage: UNK
     Route: 065
  20. CANDESARTAN. [Concomitant]
     Active Substance: CANDESARTAN
     Route: 065
  21. PREDNISONE. [Concomitant]
     Active Substance: PREDNISONE
     Dosage: 5 MG, 1 EVERY 1 DAYS
     Route: 048
  22. ACCUTANE [Concomitant]
     Active Substance: ISOTRETINOIN
     Route: 048

REACTIONS (12)
  - Sjogren^s syndrome [Unknown]
  - Bone pain [Unknown]
  - Bronchitis [Unknown]
  - Dizziness [Unknown]
  - Drug ineffective [Unknown]
  - Colitis [Unknown]
  - Nervous system neoplasm [Unknown]
  - Acne [Unknown]
  - Haemorrhoids [Unknown]
  - Osteoarthritis [Unknown]
  - Rhinalgia [Unknown]
  - Lip ulceration [Unknown]
